FAERS Safety Report 22535383 (Version 2)
Quarter: 2023Q2

REPORT INFORMATION
  Report Type: Spontaneous
  Country: CH (occurrence: CH)
  Receive Date: 20230608
  Receipt Date: 20230613
  Transmission Date: 20230722
  Serious: Yes (Life-Threatening, Hospitalization)
  Sender: FDA-Public Use
  Company Number: CH-TAKEDA-2023TUS055353

PATIENT
  Age: 57 Year
  Sex: Female
  Weight: 69.3 kg

DRUGS (20)
  1. PANTOZOL [Suspect]
     Active Substance: PANTOPRAZOLE SODIUM
     Indication: Prophylaxis against gastrointestinal ulcer
     Dosage: 40 MILLIGRAM, QD
     Route: 048
     Dates: end: 202304
  2. AMLODIPINE BESYLATE\OLMESARTAN MEDOXOMIL [Suspect]
     Active Substance: AMLODIPINE BESYLATE\OLMESARTAN MEDOXOMIL
     Indication: Hypertension
     Dosage: 20/5 MILLIGRAM, QD
     Route: 048
     Dates: end: 202304
  3. TEPMETKO [Suspect]
     Active Substance: TEPOTINIB HYDROCHLORIDE
     Indication: Lung adenocarcinoma stage IV
     Dosage: 225 MILLIGRAM, BID
     Route: 048
     Dates: start: 20230403, end: 202304
  4. OZEMPIC [Suspect]
     Active Substance: SEMAGLUTIDE
     Indication: Diabetes mellitus
     Dosage: 0.5 MILLIGRAM, 1/WEEK
     Route: 058
     Dates: end: 202304
  5. TORSEMIDE [Suspect]
     Active Substance: TORSEMIDE
     Indication: Hypertension
     Dosage: 5 MILLIGRAM, QD
     Route: 048
     Dates: end: 202304
  6. BACTRIM [Suspect]
     Active Substance: SULFAMETHOXAZOLE\TRIMETHOPRIM
     Indication: Infection prophylaxis
     Dosage: UNK UNK, 3/WEEK
     Route: 048
     Dates: end: 202304
  7. DICLOFENAC SODIUM [Suspect]
     Active Substance: DICLOFENAC SODIUM
     Indication: Pain
     Dosage: UNK UNK, QID
     Route: 061
     Dates: end: 202304
  8. FLECTOR [Suspect]
     Active Substance: DICLOFENAC EPOLAMINE
     Indication: Pain
     Dosage: UNK UNK, QD
     Route: 061
     Dates: end: 202304
  9. HYDROCORTISONE [Concomitant]
     Active Substance: HYDROCORTISONE
     Dosage: 10 MILLIGRAM
     Route: 048
     Dates: end: 202304
  10. PALEXIA [Concomitant]
     Active Substance: TAPENTADOL HYDROCHLORIDE
     Dosage: 100 MILLIGRAM, QD
     Route: 048
     Dates: end: 202304
  11. PREGABALIN [Concomitant]
     Active Substance: PREGABALIN
     Dosage: 75 MILLIGRAM, BID
     Route: 048
     Dates: end: 202304
  12. FLUCONAZOLE [Concomitant]
     Active Substance: FLUCONAZOLE
     Indication: Infection prophylaxis
     Dosage: 300 MILLIGRAM, 1/WEEK
     Route: 048
     Dates: end: 202304
  13. DAPAGLIFLOZIN [Concomitant]
     Active Substance: DAPAGLIFLOZIN
     Indication: Diabetes mellitus
     Dosage: 10 MILLIGRAM, QD
     Route: 048
     Dates: end: 202304
  14. VALTREX [Concomitant]
     Active Substance: VALACYCLOVIR HYDROCHLORIDE
     Indication: Infection prophylaxis
     Dosage: 500 MILLIGRAM, BID
     Route: 048
     Dates: end: 202304
  15. NAFTAZONE [Concomitant]
     Active Substance: NAFTAZONE
     Dosage: 30 MILLIGRAM, BID
     Route: 048
     Dates: end: 202304
  16. ANDREAFOL [Concomitant]
     Dosage: 0.4 MILLIGRAM, QD
     Dates: end: 202304
  17. DIMETHINDENE [Concomitant]
     Active Substance: DIMETHINDENE
     Dosage: UNK UNK, BID
     Route: 061
     Dates: end: 202304
  18. VISCUM ALBUM FRUITING TOP [Concomitant]
     Active Substance: VISCUM ALBUM FRUITING TOP
     Dosage: 10 MILLIGRAM, 2/WEEK
     Route: 058
     Dates: end: 202304
  19. VISCUM ALBUM FRUITING TOP [Concomitant]
     Active Substance: VISCUM ALBUM FRUITING TOP
     Dosage: 20 MILLIGRAM, 1/WEEK
     Route: 058
  20. FMS CROTALUS COMPLEX [Concomitant]
     Dosage: 1 MILLILITER, 2/WEEK
     Route: 058
     Dates: end: 202304

REACTIONS (4)
  - Pancreatitis acute [Not Recovered/Not Resolved]
  - Distributive shock [Not Recovered/Not Resolved]
  - Intestinal ischaemia [Not Recovered/Not Resolved]
  - Multiple organ dysfunction syndrome [Not Recovered/Not Resolved]

NARRATIVE: CASE EVENT DATE: 20230423
